FAERS Safety Report 17399632 (Version 4)
Quarter: 2020Q1

REPORT INFORMATION
  Report Type: Report from Study
  Country: US (occurrence: US)
  Receive Date: 20200211
  Receipt Date: 20200331
  Transmission Date: 20200409
  Serious: Yes (Hospitalization)
  Sender: FDA-Public Use
  Company Number: NVSC2020US029891

PATIENT
  Sex: Female

DRUGS (26)
  1. IFOSFAMIDE. [Suspect]
     Active Substance: IFOSFAMIDE
     Indication: NON-HODGKIN^S LYMPHOMA
     Dosage: 8 (UNSPECIFIED UNITS), Q3W
     Route: 042
     Dates: start: 20190924
  2. ACYCLOVIR. [Concomitant]
     Active Substance: ACYCLOVIR
     Dosage: UNK
     Route: 065
     Dates: start: 20190927, end: 20191128
  3. DOCUSATE [Concomitant]
     Active Substance: DOCUSATE
     Indication: CONSTIPATION
     Dosage: UNK
     Route: 065
     Dates: start: 20190924
  4. DEXAMETHASONE. [Concomitant]
     Active Substance: DEXAMETHASONE
     Indication: PROPHYLAXIS OF NAUSEA AND VOMITING
  5. PROCHLORPERAZINE. [Concomitant]
     Active Substance: PROCHLORPERAZINE
     Indication: NAUSEA
     Dosage: UNK
     Route: 065
     Dates: start: 20191022, end: 20191024
  6. ACETAMINOPHEN. [Concomitant]
     Active Substance: ACETAMINOPHEN
     Indication: THERAPEUTIC PROCEDURE
     Dosage: UNK
     Route: 065
     Dates: start: 20191022, end: 20191024
  7. DIPHENHYDRAMINE. [Concomitant]
     Active Substance: DIPHENHYDRAMINE
     Indication: THERAPEUTIC PROCEDURE
     Dosage: UNK
     Route: 065
     Dates: start: 20191013, end: 20191013
  8. MESNA. [Suspect]
     Active Substance: MESNA
     Indication: NON-HODGKIN^S LYMPHOMA
     Dosage: 1 (UNSPECIFIED UNITS), Q3W
     Route: 042
     Dates: start: 20190924
  9. ONDANSETRON [Concomitant]
     Active Substance: ONDANSETRON
     Indication: PROPHYLAXIS OF NAUSEA AND VOMITING
     Dosage: UNK
     Route: 065
     Dates: start: 20191013, end: 20191015
  10. DEXAMETHASONE. [Concomitant]
     Active Substance: DEXAMETHASONE
     Indication: PROPHYLAXIS OF NAUSEA AND VOMITING
     Dosage: UNK
     Route: 065
     Dates: start: 20191013, end: 20191015
  11. EMLA [Concomitant]
     Active Substance: LIDOCAINE\PRILOCAINE
     Indication: PROPHYLAXIS
     Dosage: UNK
     Route: 065
     Dates: start: 20190208
  12. ONDANSETRON [Concomitant]
     Active Substance: ONDANSETRON
     Indication: NAUSEA
     Dosage: UNK
     Route: 065
     Dates: start: 20191015
  13. ACETAMINOPHEN. [Concomitant]
     Active Substance: ACETAMINOPHEN
     Indication: PAIN
     Dosage: UNK
     Route: 065
     Dates: start: 20191013, end: 20191013
  14. CARBOPLATIN. [Suspect]
     Active Substance: CARBOPLATIN
     Indication: NON-HODGKIN^S LYMPHOMA
     Dosage: 400 (UNSPECIFIED UNITS), Q3W
     Route: 042
     Dates: start: 20190924
  15. FAMOTIDINE. [Concomitant]
     Active Substance: FAMOTIDINE
     Indication: THERAPEUTIC PROCEDURE
     Dosage: UNK
     Route: 065
     Dates: start: 20191013, end: 20191013
  16. MINOCYCLINE [Concomitant]
     Active Substance: MINOCYCLINE HYDROCHLORIDE
     Indication: INFECTION PROPHYLAXIS
     Dosage: UNK
     Route: 065
     Dates: start: 20191024
  17. ACYCLOVIR. [Concomitant]
     Active Substance: ACYCLOVIR
     Indication: ANTIVIRAL PROPHYLAXIS
     Dosage: UNK
     Route: 065
     Dates: start: 20190922
  18. RITUXIMAB. [Suspect]
     Active Substance: RITUXIMAB
     Indication: NON-HODGKIN^S LYMPHOMA
     Dosage: 600 (UNSPECIFIED UNITS), Q3W
     Route: 042
     Dates: start: 20190922
  19. ONDANSETRON [Concomitant]
     Active Substance: ONDANSETRON
     Indication: PROPHYLAXIS OF NAUSEA AND VOMITING
     Dosage: UNK
     Route: 065
     Dates: start: 20191022, end: 20191024
  20. ELIQUIS [Concomitant]
     Active Substance: APIXABAN
     Indication: ATRIAL FIBRILLATION
     Dosage: UNK
     Route: 065
     Dates: start: 20190907
  21. TYLENOL [Concomitant]
     Active Substance: ACETAMINOPHEN
     Indication: ARTHRALGIA
     Dosage: UNK
     Route: 065
     Dates: start: 20190920
  22. ETOPOSIDE. [Suspect]
     Active Substance: ETOPOSIDE
     Indication: NON-HODGKIN^S LYMPHOMA
     Dosage: 160  (UNSPECIFIED UNITS), Q3W
     Route: 042
     Dates: start: 20190923
  23. FOSAPREPITANT [Concomitant]
     Active Substance: FOSAPREPITANT
     Indication: PROPHYLAXIS
     Dosage: UNK
     Route: 065
     Dates: start: 20191014, end: 20191014
  24. TYLENOL [Concomitant]
     Active Substance: ACETAMINOPHEN
     Indication: HEADACHE
  25. FLUCONAZOLE. [Concomitant]
     Active Substance: FLUCONAZOLE
     Indication: ANTIFUNGAL PROPHYLAXIS
     Dosage: UNK
     Route: 065
     Dates: start: 20191002, end: 20191003
  26. CEFDINIR. [Concomitant]
     Active Substance: CEFDINIR
     Indication: ANTIBIOTIC PROPHYLAXIS
     Dosage: UNK
     Route: 065
     Dates: start: 20191002, end: 20191003

REACTIONS (1)
  - Hypotension [Recovered/Resolved]

NARRATIVE: CASE EVENT DATE: 20191022
